FAERS Safety Report 12822559 (Version 1)
Quarter: 2016Q4

REPORT INFORMATION
  Report Type: Spontaneous
  Country: US (occurrence: US)
  Receive Date: 20161007
  Receipt Date: 20161007
  Transmission Date: 20170207
  Serious: No
  Sender: FDA-Public Use
  Company Number: US-PFIZER INC-2016463781

PATIENT
  Age: 50 Year
  Sex: Female

DRUGS (1)
  1. MARCAINE [Suspect]
     Active Substance: BUPIVACAINE HYDROCHLORIDE
     Dosage: UNK (PREP INJECTED 40 DM IN 4 CC MARCAINE VIA ANTEROMEDIAL)

REACTIONS (1)
  - Drug effect incomplete [Unknown]
